FAERS Safety Report 20041997 (Version 1)
Quarter: 2021Q4

REPORT INFORMATION
  Report Type: Other
  Country: US (occurrence: None)
  Receive Date: 20211108
  Receipt Date: 20211108
  Transmission Date: 20220303
  Serious: Yes (Death, Other)
  Sender: FDA-Public Use
  Company Number: US-ROCHE-2949864

PATIENT
  Age: 80 Year
  Sex: Male

DRUGS (12)
  1. RITUXIMAB [Suspect]
     Active Substance: RITUXIMAB
     Indication: Acquired haemophilia
     Route: 042
  2. PREDNISONE [Suspect]
     Active Substance: PREDNISONE
     Indication: Acquired haemophilia
     Dosage: 1 MG/KG/DAY 2 DAYS AFTER THE INITIAL PRESENTATION.
     Route: 065
  3. PREDNISONE [Suspect]
     Active Substance: PREDNISONE
     Dosage: PREDNISONE 40 MG TWO TIMES A DAY
     Route: 065
  4. CYCLOPHOSPHAMIDE [Suspect]
     Active Substance: CYCLOPHOSPHAMIDE
     Indication: Acquired haemophilia
     Dosage: ORAL CYCLOPHOSPHAMIDE AT 2 MG/KG ONE TIME A DAY ON DAY 8.
     Route: 048
  5. ASPIRIN [Concomitant]
     Active Substance: ASPIRIN
  6. NEBIVOLOL [Concomitant]
     Active Substance: NEBIVOLOL
  7. FENOFIBRATE [Concomitant]
     Active Substance: FENOFIBRATE
  8. LOVASTATIN [Concomitant]
     Active Substance: LOVASTATIN
  9. TAMSULOSIN [Concomitant]
     Active Substance: TAMSULOSIN
  10. DOXYCYCLINE [Concomitant]
     Active Substance: DOXYCYCLINE
     Dosage: 100 MG TWO TIMES PER DAY FOR 10 DAYS
  11. COAGULATION FACTOR VII HUMAN [Concomitant]
     Active Substance: COAGULATION FACTOR VII HUMAN
     Dosage: 90 UG/KG/DOSE AS SINGLE DOSE
  12. NOVOSEVEN [Concomitant]
     Active Substance: COAGULATION FACTOR VIIA RECOMBINANT HUMAN

REACTIONS (4)
  - COVID-19 pneumonia [Fatal]
  - Neutropenic sepsis [Fatal]
  - Acute respiratory distress syndrome [Fatal]
  - Neutropenia [Unknown]
